FAERS Safety Report 6608805-3 (Version None)
Quarter: 2010Q1

REPORT INFORMATION
  Report Type: 
  Country: None (occurrence: None)
  Receive Date: 20100224
  Receipt Date: 20100224
  Transmission Date: 20100710
  Serious: No
  Sender: FDA-Public Use
  Company Number: None

PATIENT
  Age: 33 Year
  Sex: Male
  Weight: 81.6475 kg

DRUGS (8)
  1. RISPERIDONE [Suspect]
     Dosage: 4MG BID PO
     Route: 048
  2. METOPROLOL TARTRATE [Concomitant]
  3. LORAZEPAM [Concomitant]
  4. ARTANE [Concomitant]
  5. METAMUCIL-2 [Concomitant]
  6. PEPTO BISMOL [Concomitant]
  7. CALCIUM CARBONATE [Concomitant]
  8. KETOCONAZOLE [Concomitant]

REACTIONS (3)
  - BLOOD PROLACTIN INCREASED [None]
  - BREAST DISCHARGE [None]
  - BREAST MASS [None]
